FAERS Safety Report 10609336 (Version 1)
Quarter: 2014Q4

REPORT INFORMATION
  Report Type: Spontaneous
  Country: US (occurrence: US)
  Receive Date: 20141126
  Receipt Date: 20141126
  Transmission Date: 20150529
  Serious: No
  Sender: FDA-Public Use
  Company Number: US-BIOGENIDEC-2014BI123022

PATIENT
  Age: 40 Year
  Sex: Female

DRUGS (1)
  1. AVONEX [Suspect]
     Active Substance: INTERFERON BETA-1A
     Indication: MULTIPLE SCLEROSIS
     Route: 030
     Dates: start: 19960701

REACTIONS (4)
  - Feeling abnormal [Not Recovered/Not Resolved]
  - Temperature intolerance [Not Recovered/Not Resolved]
  - Pain [Not Recovered/Not Resolved]
  - Bradyphrenia [Not Recovered/Not Resolved]

NARRATIVE: CASE EVENT DATE: 1996
